FAERS Safety Report 9075841 (Version 1)
Quarter: 2013Q1

REPORT INFORMATION
  Report Type: Spontaneous
  Country: None (occurrence: US)
  Receive Date: 20130129
  Receipt Date: 20130129
  Transmission Date: 20140127
  Serious: No
  Sender: FDA-Public Use
  Company Number: US-ABBOTT-12P-163-0937670-00

PATIENT
  Sex: Male
  Weight: 66.74 kg

DRUGS (7)
  1. HUMIRA 40 MG/0.8 ML PEN [Suspect]
     Indication: COLITIS ULCERATIVE
  2. HUMIRA 40 MG/0.8 ML PEN [Suspect]
     Indication: ANKYLOSING SPONDYLITIS
  3. HUMIRA 40 MG/0.8 ML PEN [Suspect]
     Indication: OSTEOARTHRITIS
  4. 6-MP [Concomitant]
     Indication: COLITIS ULCERATIVE
  5. LIALDA [Concomitant]
     Indication: PRODUCT USED FOR UNKNOWN INDICATION
     Dosage: 1.2 GM X4TABS
  6. VIVANCE [Concomitant]
     Indication: ATTENTION DEFICIT/HYPERACTIVITY DISORDER
  7. AMLODIPINE [Concomitant]
     Indication: HYPERTENSION

REACTIONS (5)
  - Arthritis [Unknown]
  - Muscle atrophy [Not Recovered/Not Resolved]
  - Off label use [Unknown]
  - Hypotonia [Not Recovered/Not Resolved]
  - Hypertension [Not Recovered/Not Resolved]
